FAERS Safety Report 9656749 (Version 1)
Quarter: 2013Q4

REPORT INFORMATION
  Report Type: Spontaneous
  Country: DE (occurrence: None)
  Receive Date: 20131016
  Receipt Date: 20131016
  Transmission Date: 20140711
  Serious: Yes (Other)
  Sender: FDA-Public Use
  Company Number: 2013038286

PATIENT
  Age: 72 Year
  Sex: Female

DRUGS (5)
  1. PRIVIGEN [Suspect]
     Indication: B-CELL LYMPHOMA
     Dosage: 10 G TOTAL, INFUSIONS RATEMIN:1 MAX: 2 ML/MIN
     Dates: start: 20130123, end: 20130123
  2. LETROZOLE (LETROZOLE) [Concomitant]
  3. SOLU DECORTIN (PREDNISOLONE SODIUM SUCCINATE) [Concomitant]
  4. RANITIDIN (RANITIDINE HYDROCHLORIDE) [Concomitant]
  5. TAVEGIL/00137201/(CLEMASTINE) [Concomitant]

REACTIONS (4)
  - Circulatory collapse [None]
  - Blood pressure decreased [None]
  - Dysarthria [None]
  - Disorientation [None]
